FAERS Safety Report 7116095-0 (Version None)
Quarter: 2010Q4

REPORT INFORMATION
  Report Type: 
  Country: None (occurrence: None)
  Receive Date: 20101122
  Receipt Date: 20101116
  Transmission Date: 20110411
  Serious: Yes (Death, Hospitalization)
  Sender: FDA-Public Use
  Company Number: IE-ROCHE-742970

PATIENT
  Age: 92 Year
  Sex: Female

DRUGS (1)
  1. MIRCERA [Suspect]
     Route: 065
     Dates: start: 20090201

REACTIONS (2)
  - DEATH [None]
  - HIP FRACTURE [None]
